FAERS Safety Report 9844795 (Version 1)
Quarter: 2014Q1

REPORT INFORMATION
  Report Type: Spontaneous
  Country: US (occurrence: None)
  Receive Date: 20140123
  Receipt Date: 20140123
  Transmission Date: 20141002
  Serious: Yes (Other)
  Sender: FDA-Public Use
  Company Number: None

PATIENT
  Age: 25 Year
  Sex: Male
  Weight: 63.5 kg

DRUGS (1)
  1. MIRVASO [Suspect]
     Indication: ROSACEA
     Dates: start: 20140103, end: 20140120

REACTIONS (5)
  - Flushing [None]
  - Skin discolouration [None]
  - Pain of skin [None]
  - Burning sensation [None]
  - Erythema [None]
